FAERS Safety Report 24740428 (Version 1)
Quarter: 2024Q4

REPORT INFORMATION
  Report Type: Spontaneous
  Country: CN (occurrence: CN)
  Receive Date: 20241216
  Receipt Date: 20241216
  Transmission Date: 20250115
  Serious: Yes (Other)
  Sender: JOHNSON AND JOHNSON
  Company Number: CN-JNJFOC-20241208064

PATIENT

DRUGS (2)
  1. REMICADE [Suspect]
     Active Substance: INFLIXIMAB
     Indication: Colitis ulcerative
     Route: 041
  2. VEDOLIZUMAB [Suspect]
     Active Substance: VEDOLIZUMAB
     Indication: Colitis ulcerative

REACTIONS (4)
  - Tuberculosis [Unknown]
  - Lung neoplasm malignant [Unknown]
  - Hypersensitivity [Unknown]
  - Infectious mononucleosis [Unknown]
